FAERS Safety Report 5056057-0 (Version None)
Quarter: 2006Q2

REPORT INFORMATION
  Report Type: 
  Country: None (occurrence: None)
  Receive Date: 20060616
  Receipt Date: 20060316
  Transmission Date: 20061013
  Serious: No
  Sender: FDA-Public Use
  Company Number: 2006US000198

PATIENT
  Age: 59 Year
  Sex: Male

DRUGS (5)
  1. VESICARE [Suspect]
     Indication: BENIGN PROSTATIC HYPERPLASIA
     Dates: start: 20060116, end: 20060201
  2. NEXIUM [Concomitant]
  3. OXYCODONE (OXYCODONE) [Concomitant]
  4. HYOSCYAMINE (HYOSCYAMINE) [Concomitant]
  5. LOMOTIL [Concomitant]

REACTIONS (3)
  - EAR DISCOMFORT [None]
  - NASAL DRYNESS [None]
  - VISION BLURRED [None]
